FAERS Safety Report 4705763-3 (Version None)
Quarter: 2005Q3

REPORT INFORMATION
  Report Type: 
  Country: None (occurrence: None)
  Receive Date: 20050701
  Receipt Date: 20050309
  Transmission Date: 20060218
  Serious: Yes (Hospitalization, Other)
  Sender: FDA-Public Use
  Company Number: US-MERCK-0503USA01751

PATIENT
  Age: 45 Year
  Sex: Female
  Weight: 85 kg

DRUGS (10)
  1. VIOXX [Suspect]
     Indication: RHEUMATOID ARTHRITIS
     Route: 048
     Dates: start: 20000201, end: 20040801
  2. VIOXX [Suspect]
     Route: 048
     Dates: start: 20000201, end: 20040801
  3. ARAVA [Concomitant]
     Route: 065
     Dates: start: 20001130, end: 20050321
  4. REMICADE [Concomitant]
     Route: 065
     Dates: start: 20010816
  5. PREVACID [Concomitant]
     Route: 065
     Dates: start: 20000210
  6. LEVAQUIN [Concomitant]
     Route: 065
     Dates: start: 20020408, end: 20020418
  7. NORCO [Concomitant]
     Route: 065
  8. VALIUM [Concomitant]
     Route: 065
  9. DELESTROGEN [Concomitant]
     Route: 065
     Dates: start: 20000210
  10. VICODIN [Concomitant]
     Route: 065
     Dates: start: 20010523

REACTIONS (24)
  - ACUTE SINUSITIS [None]
  - ANGINA UNSTABLE [None]
  - BLOOD CHOLESTEROL INCREASED [None]
  - BONE PAIN [None]
  - CARDIAC FAILURE CONGESTIVE [None]
  - CONSTIPATION [None]
  - CORONARY ARTERY DISEASE [None]
  - FATIGUE [None]
  - FIBROMYALGIA [None]
  - GENERALISED ANXIETY DISORDER [None]
  - HAEMORRHOIDS [None]
  - HEADACHE [None]
  - HYPERTENSION [None]
  - MYOCARDIAL INFARCTION [None]
  - NAUSEA [None]
  - OEDEMA [None]
  - PNEUMONIA [None]
  - RASH [None]
  - SINUS TACHYCARDIA [None]
  - STOMATITIS [None]
  - TEARFULNESS [None]
  - TENDON SHEATH INCISION [None]
  - TOOTH ABSCESS [None]
  - UPPER RESPIRATORY TRACT INFECTION [None]
